FAERS Safety Report 14491261 (Version 1)
Quarter: 2018Q1

REPORT INFORMATION
  Report Type: Spontaneous
  Country: GB (occurrence: GB)
  Receive Date: 20180206
  Receipt Date: 20180206
  Transmission Date: 20180509
  Serious: Yes (Other)
  Sender: FDA-Public Use
  Company Number: PHHY2017GB200054

PATIENT

DRUGS (4)
  1. FOLIC ACID. [Suspect]
     Active Substance: FOLIC ACID
     Indication: RHEUMATOID ARTHRITIS
     Dosage: 5-10 MG, QW
     Route: 065
  2. SB (ANTIMONY) [Suspect]
     Active Substance: ANTIMONY
     Indication: RHEUMATOID ARTHRITIS
     Dosage: 50 MG, QW
     Route: 058
  3. METHOTREXATE. [Suspect]
     Active Substance: METHOTREXATE
     Indication: RHEUMATOID ARTHRITIS
     Dosage: 10-25 MG PER WEEK
     Route: 065
  4. SB4 [Suspect]
     Active Substance: INVESTIGATIONAL BIOSIMILARS

REACTIONS (1)
  - Breast cancer [Unknown]
